FAERS Safety Report 8355488-0 (Version None)
Quarter: 2012Q2

REPORT INFORMATION
  Report Type: 
  Country: None (occurrence: None)
  Receive Date: 20120512
  Receipt Date: 20120501
  Transmission Date: 20120825
  Serious: Yes (Hospitalization, Other)
  Sender: FDA-Public Use
  Company Number: US-ELI_LILLY_AND_COMPANY-US201202001057

PATIENT
  Sex: Female

DRUGS (18)
  1. POTASSIUM CHLORIDE [Concomitant]
  2. MIRALAX [Concomitant]
  3. PRILOSEC [Concomitant]
  4. PREDNISONE TAB [Concomitant]
  5. VITAMIN D [Concomitant]
  6. FORTEO [Suspect]
     Indication: OSTEOPOROSIS
     Dosage: 20 UG, QD
     Dates: start: 20110401
  7. FORTEO [Suspect]
     Dosage: 20 UG, QD
  8. FORTEO [Suspect]
     Dosage: 20 UG, QD
  9. COLACE [Concomitant]
  10. ATIVAN [Concomitant]
  11. HIDROCLOROTIAZIDE [Concomitant]
  12. LOPRESSOR [Concomitant]
  13. CALCIUM [Concomitant]
  14. COZAAR [Concomitant]
  15. ASPIRIN [Concomitant]
  16. MEVACOR [Concomitant]
  17. CRANBERRY [Concomitant]
  18. LUMIGAN [Concomitant]

REACTIONS (21)
  - GENERAL PHYSICAL CONDITION ABNORMAL [None]
  - VOMITING [None]
  - CONTUSION [None]
  - BACK PAIN [None]
  - PULMONARY FIBROSIS [None]
  - CARDIAC FAILURE CONGESTIVE [None]
  - DYSARTHRIA [None]
  - EXCORIATION [None]
  - MYOCARDIAL INFARCTION [None]
  - SEPSIS [None]
  - DYSPNOEA [None]
  - TRANSIENT ISCHAEMIC ATTACK [None]
  - PNEUMONIA [None]
  - PYREXIA [None]
  - FALL [None]
  - LUNG DISORDER [None]
  - CHEST PAIN [None]
  - PAIN [None]
  - RESPIRATORY FAILURE [None]
  - RALES [None]
  - JOINT SWELLING [None]
